FAERS Safety Report 10036308 (Version 1)
Quarter: 2014Q1

REPORT INFORMATION
  Report Type: Spontaneous
  Country: IN (occurrence: IN)
  Receive Date: 20140325
  Receipt Date: 20140325
  Transmission Date: 20141002
  Serious: Yes (Other)
  Sender: FDA-Public Use
  Company Number: IN-WATSON-2014-05638

PATIENT
  Age: 23 Year
  Sex: Female

DRUGS (5)
  1. CEFTRIAXONE (UNKNOWN) [Suspect]
     Indication: SEPSIS
     Dosage: UNK
     Route: 065
  2. METRONIDAZOLE (UNKNOWN) [Suspect]
     Indication: SEPSIS
     Dosage: UNK
     Route: 065
  3. AMIKACIN [Suspect]
     Indication: SEPSIS
     Dosage: UNK
     Route: 065
  4. VANCOMYCIN (UNKNOWN) [Suspect]
     Indication: SEPSIS
     Dosage: UNK
     Route: 051
  5. MAGNEX /00883901/ [Suspect]
     Indication: SEPSIS
     Dosage: UNK
     Route: 065

REACTIONS (1)
  - Skin candida [Unknown]
